FAERS Safety Report 7919399-4 (Version None)
Quarter: 2011Q4

REPORT INFORMATION
  Report Type: 
  Country: None (occurrence: None)
  Receive Date: 20111115
  Receipt Date: 20111103
  Transmission Date: 20120403
  Serious: Yes (Other)
  Sender: FDA-Public Use
  Company Number: KAD201111-000055

PATIENT
  Age: 43 Year
  Sex: Male

DRUGS (2)
  1. RIBAVIRIN [Suspect]
     Indication: HEPATITIS C
     Dosage: 1200 MG DAILY, ORAL ; 1000 MG DAILY, ORAL
     Route: 048
  2. PEGINTERFERON ALFA-2A [Suspect]
     Indication: HEPATITIS C
     Dosage: 180 UG WEEKLY, SUBCUTANEOUS ; 135 UG WEEKLY, SUBCUTANEOUS
     Route: 058

REACTIONS (9)
  - MYALGIA [None]
  - LEUKOPENIA [None]
  - DIARRHOEA [None]
  - HEADACHE [None]
  - AUTOIMMUNE THYROIDITIS [None]
  - THROMBOCYTOPENIA [None]
  - CHILLS [None]
  - BASEDOW'S DISEASE [None]
  - ANAEMIA [None]
